FAERS Safety Report 9473013 (Version 2)
Quarter: 2013Q3

REPORT INFORMATION
  Report Type: Spontaneous
  Country: BR (occurrence: BR)
  Receive Date: 20130823
  Receipt Date: 20130823
  Transmission Date: 20140515
  Serious: Yes (Death, Life-Threatening, Hospitalization, Disabling)
  Sender: FDA-Public Use
  Company Number: BR-B.I. PHARMACEUTICALS,INC./RIDGEFIELD-2013-BR-00926BR

PATIENT
  Age: 73 Year
  Sex: Male
  Weight: 45 kg

DRUGS (3)
  1. SPIRIVA RESPIMAT [Suspect]
     Indication: EMPHYSEMA
     Dosage: 1.25 MCG
     Route: 055
     Dates: start: 201304, end: 20130606
  2. MEDICATION FOR DIABETES [Concomitant]
     Indication: DIABETES MELLITUS
  3. MEDICATION FOR PARKINSON [Concomitant]
     Indication: PARKINSON^S DISEASE

REACTIONS (3)
  - Lung infection [Fatal]
  - Emphysema [Fatal]
  - Pneumonia [Not Recovered/Not Resolved]
